FAERS Safety Report 8593655-1 (Version None)
Quarter: 2012Q3

REPORT INFORMATION
  Report Type: 
  Country: None (occurrence: None)
  Receive Date: 20120814
  Receipt Date: 20120813
  Transmission Date: 20120928
  Serious: No
  Sender: FDA-Public Use
  Company Number: US-009507513-1103USA03600

PATIENT

DRUGS (3)
  1. PROPECIA [Suspect]
     Indication: ALOPECIA
     Dosage: 1 MG, UNK
     Route: 048
     Dates: start: 20060901, end: 20080801
  2. PROPECIA [Suspect]
     Indication: ANDROGENETIC ALOPECIA
  3. METOPROLOL [Concomitant]
     Indication: HYPERTENSION

REACTIONS (24)
  - TESTICULAR ATROPHY [None]
  - SPERM CONCENTRATION DECREASED [None]
  - PENIS DISORDER [None]
  - ORGANIC ERECTILE DYSFUNCTION [None]
  - PALPITATIONS [None]
  - ADJUSTMENT DISORDER [None]
  - ANGIOLIPOMA [None]
  - HYPERLIPIDAEMIA [None]
  - DISSOCIATION [None]
  - SPERMATOZOA ABNORMAL [None]
  - TESTICULAR PAIN [None]
  - TACHYCARDIA [None]
  - LIBIDO DECREASED [None]
  - HYPOTHYROIDISM [None]
  - BLOOD LACTATE DEHYDROGENASE INCREASED [None]
  - ERECTILE DYSFUNCTION [None]
  - MUSCLE ATROPHY [None]
  - DEPRESSED MOOD [None]
  - TRANSAMINASES INCREASED [None]
  - BENIGN NEOPLASM OF SKIN [None]
  - DIZZINESS [None]
  - MUSCLE TWITCHING [None]
  - ATROPHY [None]
  - SEMEN VOLUME DECREASED [None]
